FAERS Safety Report 6669657-9 (Version None)
Quarter: 2010Q2

REPORT INFORMATION
  Report Type: 
  Country: None (occurrence: None)
  Receive Date: 20100406
  Receipt Date: 20100323
  Transmission Date: 20101027
  Serious: Yes (Other)
  Sender: FDA-Public Use
  Company Number: DE-MYLANLABS-2010S1004963

PATIENT
  Age: 76 Year
  Sex: Male
  Weight: 63 kg

DRUGS (9)
  1. ALENDRONAT [Suspect]
     Indication: DRUG USE FOR UNKNOWN INDICATION
     Dosage: DAILY DOSE: 75 DF DOSAGE FORM EVERY WEEKS
     Dates: start: 20091101
  2. CALCIUM [Concomitant]
     Indication: DRUG USE FOR UNKNOWN INDICATION
     Dosage: DAILY DOSE: 1 DF DOSAGE FORM EVERY DAYS
     Dates: start: 20091101
  3. ATENOLOL [Concomitant]
     Indication: DRUG USE FOR UNKNOWN INDICATION
  4. ASPIRIN [Concomitant]
     Indication: DRUG USE FOR UNKNOWN INDICATION
  5. SIMVABETA [Concomitant]
     Indication: DRUG USE FOR UNKNOWN INDICATION
  6. FUROSEMID [Concomitant]
     Indication: DRUG USE FOR UNKNOWN INDICATION
  7. PRIMIDONE [Concomitant]
     Indication: DRUG USE FOR UNKNOWN INDICATION
  8. TIMONIL [Concomitant]
     Indication: DRUG USE FOR UNKNOWN INDICATION
  9. TAMSULOSIN HCL [Concomitant]
     Indication: DRUG USE FOR UNKNOWN INDICATION

REACTIONS (1)
  - PARAESTHESIA [None]
